FAERS Safety Report 9365768 (Version 1)
Quarter: 2013Q2

REPORT INFORMATION
  Report Type: Spontaneous
  Country: FR (occurrence: FR)
  Receive Date: 20130625
  Receipt Date: 20130625
  Transmission Date: 20140414
  Serious: Yes (Other)
  Sender: FDA-Public Use
  Company Number: FR-ACCORD-018168

PATIENT
  Age: 84 Year
  Sex: Female

DRUGS (5)
  1. LEVETIRACETAM [Suspect]
     Indication: GRAND MAL CONVULSION
  2. SODIUM VALPROATE [Concomitant]
     Indication: GRAND MAL CONVULSION
  3. LORAZEPAM [Concomitant]
  4. FUROSEMIDE [Concomitant]
  5. LAMOTRIGINE [Concomitant]
     Indication: GRAND MAL CONVULSION

REACTIONS (1)
  - Metabolic encephalopathy [Recovering/Resolving]
